FAERS Safety Report 9764479 (Version 2)
Quarter: 2014Q3

REPORT INFORMATION
  Report Type: Spontaneous
  Country: JP (occurrence: JP)
  Receive Date: 20131217
  Receipt Date: 20140703
  Transmission Date: 20150326
  Serious: Yes (Hospitalization)
  Sender: FDA-Public Use
  Company Number: JP-JNJFOC-20131206652

PATIENT
  Age: 69 Year
  Sex: Female

DRUGS (3)
  1. LOPEMIN [Suspect]
     Active Substance: LOPERAMIDE HYDROCHLORIDE
     Indication: DIARRHOEA
     Route: 048
     Dates: start: 201107
  2. LOXONIN [Suspect]
     Active Substance: LOXOPROFEN SODIUM
     Indication: NASOPHARYNGITIS
     Route: 048
     Dates: start: 201107
  3. NON-PYRINE COLD PREPARATION [Suspect]
     Active Substance: UNSPECIFIED INGREDIENT
     Indication: NASOPHARYNGITIS
     Route: 048
     Dates: start: 201107

REACTIONS (1)
  - Drug eruption [Recovered/Resolved]

NARRATIVE: CASE EVENT DATE: 201107
